FAERS Safety Report 4381408-X (Version None)
Quarter: 2004Q2

REPORT INFORMATION
  Report Type: 
  Country: None (occurrence: None)
  Receive Date: 20040616
  Receipt Date: 20040602
  Transmission Date: 20050107
  Serious: Yes (Other)
  Sender: FDA-Public Use
  Company Number: USA040362835

PATIENT
  Age: 69 Year
  Sex: Female

DRUGS (6)
  1. EVISTA [Suspect]
     Indication: OSTEOPOROSIS
     Dosage: 60 MG/1 DAY
     Dates: end: 20040301
  2. ESTROGENS NOS [Concomitant]
  3. CALCIUM [Concomitant]
  4. SULFASALAZINE [Concomitant]
  5. PLAQUENIL (HYDROXYCHROLOQUINE SULFATE) [Concomitant]
  6. MULTIVITAMIN [Concomitant]

REACTIONS (3)
  - DRUG INEFFECTIVE [None]
  - GASTRITIS [None]
  - PUBIC RAMI FRACTURE [None]
